FAERS Safety Report 5272950-8 (Version None)
Quarter: 2007Q1

REPORT INFORMATION
  Report Type: 
  Country: None (occurrence: None)
  Receive Date: 20061219
  Receipt Date: 20061010
  Transmission Date: 20070707
  Serious: Yes (Hospitalization, Other)
  Sender: FDA-Public Use
  Company Number: US-JNJFOC-20061003030

PATIENT
  Age: 37 Year
  Sex: Female

DRUGS (7)
  1. ORTHO EVRA [Suspect]
     Indication: DRUG USE FOR UNKNOWN INDICATION
     Dates: start: 20031201
  2. BEXTRA [Concomitant]
  3. SYNTHROID [Concomitant]
  4. PROZAC [Concomitant]
  5. FAMVIR (PAMCICLOVIR) [Concomitant]
  6. LASIX [Concomitant]
  7. KLONOPIN [Concomitant]

REACTIONS (1)
  - PULMONARY EMBOLISM [None]
